FAERS Safety Report 4682952-8 (Version None)
Quarter: 2005Q2

REPORT INFORMATION
  Report Type: 
  Country: None (occurrence: None)
  Receive Date: 20050602
  Receipt Date: 20050315
  Transmission Date: 20051028
  Serious: No
  Sender: FDA-Public Use
  Company Number: USA050393288

PATIENT
  Age: 62 Year
  Sex: Female

DRUGS (3)
  1. CYMBALTA [Suspect]
     Dosage: 30 MG/2 X DAY
  2. PRILOSEC (OMEPRAZOLE RATIOPHARM) [Concomitant]
  3. PEPCID [Concomitant]

REACTIONS (1)
  - GASTROINTESTINAL DISORDER [None]
